FAERS Safety Report 23101045 (Version 1)
Quarter: 2023Q4

REPORT INFORMATION
  Report Type: Spontaneous
  Country: US (occurrence: None)
  Receive Date: 20231020
  Receipt Date: 20231020
  Transmission Date: 20240110
  Serious: Yes (Death)
  Sender: FDA-Public Use
  Company Number: None

PATIENT
  Age: 24 Year
  Sex: Male

DRUGS (2)
  1. HERBAL NOS [Suspect]
     Active Substance: HERBALS
     Indication: Anxiety
     Dosage: OTHER STRENGTH : 10 OZ;?
  2. MIRTAZAPINE [Suspect]
     Active Substance: MIRTAZAPINE

REACTIONS (2)
  - Cardiac arrest [None]
  - Toxicity to various agents [None]

NARRATIVE: CASE EVENT DATE: 20221220
